FAERS Safety Report 5034798-9 (Version None)
Quarter: 2006Q2

REPORT INFORMATION
  Report Type: 
  Country: None (occurrence: None)
  Receive Date: 20060509
  Receipt Date: 20050714
  Transmission Date: 20061013
  Serious: Yes (Other)
  Sender: FDA-Public Use
  Company Number: 410975

PATIENT
  Age: 27 Year
  Sex: Male
  Weight: 72.6 kg

DRUGS (2)
  1. NAPROSYN [Suspect]
     Indication: ARTHRALGIA
     Dosage: ORAL
     Route: 048
     Dates: start: 20050308, end: 20050415
  2. TAGAMET [Concomitant]

REACTIONS (3)
  - GASTRIC ULCER [None]
  - GASTRITIS EROSIVE [None]
  - STOMACH DISCOMFORT [None]
